FAERS Safety Report 5337431-1 (Version None)
Quarter: 2007Q2

REPORT INFORMATION
  Report Type: 
  Country: None (occurrence: None)
  Receive Date: 20070309
  Receipt Date: 20061110
  Transmission Date: 20071010
  Serious: Yes (Other)
  Sender: FDA-Public Use
  Company Number: US200609002809

PATIENT
  Age: 50 Year
  Sex: Male
  Weight: 100.2 kg

DRUGS (7)
  1. GEMZAR [Suspect]
     Indication: PANCREATIC CARCINOMA
     Dosage: SEE IMAGE
     Route: 042
     Dates: start: 20060530, end: 20060804
  2. GEMZAR [Suspect]
     Indication: PANCREATIC CARCINOMA
     Dosage: SEE IMAGE
     Route: 042
     Dates: start: 20060804, end: 20061020
  3. PACLITAXEL [Concomitant]
  4. NEXIUM [Concomitant]
  5. LANTUS [Concomitant]
  6. HUMALOG [Concomitant]
  7. SODIUM CHLORIDE [Concomitant]

REACTIONS (4)
  - INJECTION SITE ERYTHEMA [None]
  - INJECTION SITE PHLEBITIS [None]
  - PAIN IN EXTREMITY [None]
  - RECALL PHENOMENON [None]
